FAERS Safety Report 11569700 (Version 1)
Quarter: 2015Q3

REPORT INFORMATION
  Report Type: Spontaneous
  Country: US (occurrence: US)
  Receive Date: 20150929
  Receipt Date: 20150929
  Transmission Date: 20151125
  Serious: No
  Sender: FDA-Public Use
  Company Number: US-SHIONOGI, INC-2015000838

PATIENT
  Age: 72 Year
  Sex: Female

DRUGS (2)
  1. OSPHENA [Suspect]
     Active Substance: OSPEMIFENE
     Indication: VULVOVAGINAL DISCOMFORT
     Dosage: 30 MG (HALF TABLET), QD
     Route: 048
     Dates: start: 201507
  2. OSPHENA [Suspect]
     Active Substance: OSPEMIFENE
     Indication: OFF LABEL USE
     Dosage: 60 MG, QD
     Route: 048
     Dates: start: 201412, end: 201507

REACTIONS (3)
  - Off label use [Unknown]
  - Prescribed underdose [Unknown]
  - No adverse event [Unknown]

NARRATIVE: CASE EVENT DATE: 201412
